FAERS Safety Report 5946815-X (Version None)
Quarter: 2008Q4

REPORT INFORMATION
  Report Type: 
  Country: None (occurrence: None)
  Receive Date: 20081110
  Receipt Date: 20081031
  Transmission Date: 20090506
  Serious: Yes (Death)
  Sender: FDA-Public Use
  Company Number: US-JNJFOC-20080700267

PATIENT
  Sex: Female
  Weight: 111.59 kg

DRUGS (8)
  1. ORTHO EVRA [Suspect]
     Indication: HYPERTENSION
     Route: 062
  2. ORTHO EVRA [Suspect]
     Indication: CONTRACEPTION
     Route: 062
  3. LITHIUM [Concomitant]
  4. DEPAKOTE [Concomitant]
  5. CLINDAMYCIN PHOSPHATE [Concomitant]
  6. PHISOHEX [Concomitant]
  7. TERCONAZOLE [Concomitant]
  8. HYDROCHLOROTHIAZIDE [Concomitant]
     Indication: HYPERTENSION

REACTIONS (1)
  - CEREBRAL INFARCTION [None]
